FAERS Safety Report 20394032 (Version 2)
Quarter: 2025Q2

REPORT INFORMATION
  Report Type: Spontaneous
  Country: CA (occurrence: CA)
  Receive Date: 20220129
  Receipt Date: 20250621
  Transmission Date: 20250717
  Serious: Yes (Other)
  Sender: AUROBINDO
  Company Number: CA-MLMSERVICE-20220111-3310853-2

PATIENT
  Age: 39 Year
  Sex: Female

DRUGS (15)
  1. PAROXETINE [Interacting]
     Active Substance: PAROXETINE
     Indication: Mood swings
     Dosage: 10 MILLIGRAM, ONCE A DAY
     Route: 065
     Dates: start: 201802, end: 2018
  2. SUMATRIPTAN [Interacting]
     Active Substance: SUMATRIPTAN
     Indication: Migraine prophylaxis
     Route: 048
     Dates: start: 201701
  3. SUMATRIPTAN [Interacting]
     Active Substance: SUMATRIPTAN
     Indication: Migraine
  4. KETOROLAC [Concomitant]
     Active Substance: KETOROLAC TROMETHAMINE
     Indication: Migraine prophylaxis
     Route: 048
  5. KETOROLAC [Concomitant]
     Active Substance: KETOROLAC TROMETHAMINE
     Indication: Migraine
  6. PROMETHAZINE [Concomitant]
     Active Substance: PROMETHAZINE HYDROCHLORIDE
     Indication: Migraine prophylaxis
     Route: 048
  7. PROMETHAZINE [Concomitant]
     Active Substance: PROMETHAZINE HYDROCHLORIDE
     Indication: Migraine
  8. ESCITALOPRAM [Concomitant]
     Active Substance: ESCITALOPRAM OXALATE
     Indication: Anxiety
     Route: 048
  9. ESCITALOPRAM [Concomitant]
     Active Substance: ESCITALOPRAM OXALATE
     Indication: Depression
  10. LEVONORGESTREL [Concomitant]
     Active Substance: LEVONORGESTREL
     Indication: Hormonal contraception
     Route: 065
  11. ETHINYL ESTRADIOL [Concomitant]
     Active Substance: ETHINYL ESTRADIOL
     Indication: Hormonal contraception
     Route: 048
  12. LORATADINE [Concomitant]
     Active Substance: LORATADINE
     Indication: Rhinitis allergic
     Route: 065
  13. PSEUDOEPHEDRINE [Concomitant]
     Active Substance: PSEUDOEPHEDRINE
     Indication: Rhinitis allergic
     Route: 065
  14. VITAMIN C [Concomitant]
     Active Substance: ASCORBIC ACID
     Indication: Supplementation therapy
     Dosage: 125 MILLIGRAM, TWO TIMES A DAY
     Route: 048
  15. VITAMIN D [Concomitant]
     Active Substance: VITAMIN D NOS
     Indication: Supplementation therapy
     Route: 048

REACTIONS (10)
  - Anxiety [Not Recovered/Not Resolved]
  - Condition aggravated [Unknown]
  - Depressive symptom [Unknown]
  - Drug-disease interaction [Unknown]
  - Drug interaction [Unknown]
  - Dyspepsia [Unknown]
  - Hot flush [Unknown]
  - Headache [Unknown]
  - Insomnia [Unknown]
  - Middle insomnia [Unknown]

NARRATIVE: CASE EVENT DATE: 20180101
